FAERS Safety Report 21687416 (Version 2)
Quarter: 2023Q1

REPORT INFORMATION
  Report Type: Report from Study
  Country: US (occurrence: US)
  Receive Date: 20221206
  Receipt Date: 20230210
  Transmission Date: 20230417
  Serious: No
  Sender: FDA-Public Use
  Company Number: US-002147023-NVSC2022US280119

PATIENT
  Age: 34 Year
  Sex: Male
  Weight: 93 kg

DRUGS (2)
  1. COSENTYX [Suspect]
     Active Substance: SECUKINUMAB
     Indication: Psoriasis
     Dosage: 300 MG, QW (QW FOR 5 WEEKS)
     Route: 058
     Dates: start: 202211
  2. COSENTYX [Suspect]
     Active Substance: SECUKINUMAB
     Dosage: 300 MG, QMO
     Route: 058
     Dates: start: 202211

REACTIONS (4)
  - Influenza [Unknown]
  - Pain [Recovered/Resolved]
  - Pyrexia [Recovered/Resolved]
  - Decreased appetite [Recovered/Resolved]

NARRATIVE: CASE EVENT DATE: 20221118
